FAERS Safety Report 5944909-6 (Version None)
Quarter: 2008Q4

REPORT INFORMATION
  Report Type: 
  Country: None (occurrence: None)
  Receive Date: 20081107
  Receipt Date: 20081028
  Transmission Date: 20090506
  Serious: Yes (Hospitalization, Other)
  Sender: FDA-Public Use
  Company Number: GB-JNJFOC-20081007072

PATIENT
  Sex: Female
  Weight: 54 kg

DRUGS (8)
  1. REMICADE [Suspect]
     Indication: RHEUMATOID ARTHRITIS
     Route: 042
  2. METHOTREXATE [Concomitant]
  3. PREDNISOLONE [Concomitant]
  4. ALENDRONIC ACID [Concomitant]
  5. FOLIC ACID [Concomitant]
  6. MELOXICAM [Concomitant]
  7. METOCLOPRAMIDE [Concomitant]
  8. TRAMADOL HCL [Concomitant]

REACTIONS (1)
  - LUNG CANCER METASTATIC [None]
